FAERS Safety Report 10252352 (Version 3)
Quarter: 2015Q1

REPORT INFORMATION
  Report Type: Spontaneous
  Country: JP (occurrence: JP)
  Receive Date: 20140623
  Receipt Date: 20150226
  Transmission Date: 20150720
  Serious: Yes (Hospitalization, Other)
  Sender: FDA-Public Use
  Company Number: JP-MYLANLABS-2014S1014289

PATIENT

DRUGS (6)
  1. CARBOPLATIN INJECTION 50 MG ^NK^ [Suspect]
     Active Substance: CARBOPLATIN
     Indication: PROPHYLACTIC CHEMOTHERAPY
  2. TAXOL [Suspect]
     Active Substance: PACLITAXEL
     Indication: CERVIX CARCINOMA STAGE III
  3. GRANISETRON [Concomitant]
     Active Substance: GRANISETRON
     Indication: PROPHYLAXIS OF NAUSEA AND VOMITING
     Dosage: ??
     Route: 042
     Dates: start: 20120419, end: 20120608
  4. CARBOPLATIN INJECTION 50 MG ^NK^ [Suspect]
     Active Substance: CARBOPLATIN
     Indication: CERVIX CARCINOMA STAGE III
     Dosage: 150 MG, TID
     Route: 041
     Dates: start: 20120419, end: 20120618
  5. TAXOL [Suspect]
     Active Substance: PACLITAXEL
     Indication: PROPHYLACTIC CHEMOTHERAPY
     Dosage: 87 MG, TID
     Route: 041
     Dates: start: 20120419, end: 20120618
  6. NASEA OD [Concomitant]
     Indication: PROPHYLAXIS OF NAUSEA AND VOMITING
     Dosage: ??
     Route: 048
     Dates: start: 20120419, end: 20120608

REACTIONS (5)
  - White blood cell count decreased [Recovered/Resolved]
  - Anaemia [Not Recovered/Not Resolved]
  - Thrombocytopenia [Recovered/Resolved]
  - Neutropenia [Recovered/Resolved]
  - Fatigue [Recovered/Resolved]

NARRATIVE: CASE EVENT DATE: 20120419
